FAERS Safety Report 11575713 (Version 2)
Quarter: 2015Q4

REPORT INFORMATION
  Report Type: Spontaneous
  Country: US (occurrence: US)
  Receive Date: 20150930
  Receipt Date: 20151110
  Transmission Date: 20160304
  Serious: Yes (Hospitalization, Other)
  Sender: FDA-Public Use
  Company Number: US-ASTRAZENECA-2015SE92761

PATIENT
  Age: 25428 Day
  Sex: Male
  Weight: 93 kg

DRUGS (13)
  1. CREON [Concomitant]
     Active Substance: PANCRELIPASE AMYLASE\PANCRELIPASE LIPASE\PANCRELIPASE PROTEASE
     Route: 065
  2. AVODART [Concomitant]
     Active Substance: DUTASTERIDE
     Route: 048
  3. BYETTA [Suspect]
     Active Substance: EXENATIDE
     Route: 065
     Dates: start: 200703, end: 201006
  4. BYETTA [Suspect]
     Active Substance: EXENATIDE
     Dosage: 5 MCG TWICE A DAY
     Route: 065
     Dates: start: 20070409
  5. DOXYCYCLINE. [Concomitant]
     Active Substance: DOXYCYCLINE
     Route: 065
  6. AVELOX [Concomitant]
     Active Substance: MOXIFLOXACIN HYDROCHLORIDE
     Route: 048
     Dates: start: 20000714
  7. ALTACE [Concomitant]
     Active Substance: RAMIPRIL
     Route: 048
  8. TRICOR [Concomitant]
     Active Substance: FENOFIBRATE
     Route: 065
  9. KETEK [Concomitant]
     Active Substance: TELITHROMYCIN
     Route: 048
  10. LIPITOR [Concomitant]
     Active Substance: ATORVASTATIN CALCIUM
     Route: 048
     Dates: start: 20001120
  11. CYCLOBENZAPRINE [Concomitant]
     Active Substance: CYCLOBENZAPRINE
     Route: 048
     Dates: start: 20000324
  12. PERCOCET [Concomitant]
     Active Substance: ACETAMINOPHEN\OXYCODONE HYDROCHLORIDE
     Route: 065
  13. ZOCOR [Concomitant]
     Active Substance: SIMVASTATIN
     Route: 048
     Dates: start: 20000616

REACTIONS (4)
  - Pancreatitis chronic [Unknown]
  - Jaundice cholestatic [Unknown]
  - Adenocarcinoma pancreas [Unknown]
  - Metastases to lymph nodes [Unknown]

NARRATIVE: CASE EVENT DATE: 20150209
